FAERS Safety Report 8504214-0 (Version None)
Quarter: 2012Q2

REPORT INFORMATION
  Report Type: 
  Country: None (occurrence: None)
  Receive Date: 20120405
  Receipt Date: 20101129
  Transmission Date: 20120825
  Serious: Yes (Hospitalization, Other)
  Sender: FDA-Public Use
  Company Number: PHHY2010US71113

PATIENT
  Age: 56 Year
  Sex: Female

DRUGS (2)
  1. RECLAST [Suspect]
     Indication: OSTEOPOROSIS
     Dosage: 5 MG, INFUSION
     Dates: start: 20101014
  2. ACETAMINOPHEN [Concomitant]

REACTIONS (3)
  - VOMITING [None]
  - NAUSEA [None]
  - CHEST PAIN [None]
